FAERS Safety Report 7893310-7 (Version None)
Quarter: 2011Q4

REPORT INFORMATION
  Report Type: 
  Country: None (occurrence: None)
  Receive Date: 20111104
  Receipt Date: 20111102
  Transmission Date: 20120403
  Serious: Yes (Other)
  Sender: FDA-Public Use
  Company Number: JP-PFIZER INC-2011267809

PATIENT
  Age: 70 Year
  Sex: Male
  Weight: 66.7 kg

DRUGS (6)
  1. LYRICA [Suspect]
     Dosage: 75 MG, 4X/DAY
     Route: 048
     Dates: start: 20110913, end: 20111014
  2. METHYCOBAL [Concomitant]
     Dosage: UNK
  3. HERLAT [Concomitant]
     Dosage: UNK
  4. GLIMEPIRIDE [Concomitant]
     Dosage: UNK
  5. METFORMIN HCL [Concomitant]
     Dosage: UNK
  6. LYRICA [Suspect]
     Indication: POST HERPETIC NEURALGIA
     Dosage: 75 MG, 3X/DAY
     Route: 048
     Dates: start: 20110706, end: 20110912

REACTIONS (6)
  - GENERALISED OEDEMA [None]
  - PLEURAL EFFUSION [None]
  - DYSPNOEA [None]
  - FATIGUE [None]
  - JOINT SWELLING [None]
  - MALAISE [None]
